FAERS Safety Report 12538408 (Version 2)
Quarter: 2016Q3

REPORT INFORMATION
  Report Type: Report from Study
  Country: TW (occurrence: TW)
  Receive Date: 20160707
  Receipt Date: 20160824
  Transmission Date: 20161109
  Serious: Yes (Life-Threatening, Hospitalization, Other)
  Sender: FDA-Public Use
  Company Number: PHHO2010TW19816

PATIENT
  Age: 50 Year
  Sex: Female
  Weight: 59 kg

DRUGS (6)
  1. NVP-AHU377,VALSARTAN [Suspect]
     Active Substance: SACUBITRIL\VALSARTAN
     Indication: ESSENTIAL HYPERTENSION
     Dosage: 400 MG, QD
     Route: 048
     Dates: start: 20101216, end: 20101229
  2. KALIMATE [Concomitant]
     Active Substance: CALCIUM POLYSTYRENE SULFONATE
     Indication: PRODUCT USED FOR UNKNOWN INDICATION
     Route: 065
  3. PLAQUENIL [Concomitant]
     Active Substance: HYDROXYCHLOROQUINE SULFATE
     Indication: PRODUCT USED FOR UNKNOWN INDICATION
     Route: 065
  4. DIPHENHYDRAMINE. [Concomitant]
     Active Substance: DIPHENHYDRAMINE
     Indication: PRODUCT USED FOR UNKNOWN INDICATION
     Route: 065
  5. DEXOFEN [Concomitant]
     Indication: PRODUCT USED FOR UNKNOWN INDICATION
     Route: 065
  6. ALLOPURINOL. [Suspect]
     Active Substance: ALLOPURINOL
     Indication: PRODUCT USED FOR UNKNOWN INDICATION
     Route: 065

REACTIONS (18)
  - Blood creatine phosphokinase increased [Recovered/Resolved]
  - Fungal infection [Recovering/Resolving]
  - Rhabdomyolysis [Recovering/Resolving]
  - Dysarthria [Recovered/Resolved]
  - Infection [Recovering/Resolving]
  - Leukocytosis [Recovered/Resolved]
  - Hepatic function abnormal [Recovered/Resolved]
  - Hepatic necrosis [Recovered/Resolved]
  - Acute kidney injury [Recovered/Resolved]
  - Blood lactate dehydrogenase increased [Recovered/Resolved]
  - Microcytic anaemia [Recovered/Resolved]
  - Base excess decreased [Unknown]
  - Eosinophilia [Recovered/Resolved]
  - Escherichia infection [Recovering/Resolving]
  - Gait disturbance [Unknown]
  - Pulmonary oedema [Recovering/Resolving]
  - Hepatitis acute [Recovered/Resolved]
  - Renal impairment [Unknown]

NARRATIVE: CASE EVENT DATE: 20101229
